FAERS Safety Report 23818846 (Version 1)
Quarter: 2024Q2

REPORT INFORMATION
  Report Type: Spontaneous
  Country: US (occurrence: US)
  Receive Date: 20240506
  Receipt Date: 20240506
  Transmission Date: 20240716
  Serious: No
  Sender: FDA-Public Use
  Company Number: US-AUROBINDO-AUR-APL-2023-030648

PATIENT
  Age: 59 Year
  Sex: Female
  Weight: 54.4 kg

DRUGS (2)
  1. DEXTROMETHORPHAN\GUAIFENESIN [Suspect]
     Active Substance: DEXTROMETHORPHAN\GUAIFENESIN
     Indication: Pulmonary congestion
     Dosage: UNK (ONE TABLET IN MORNING AND ONE TABLET IN THE EVENING.)
     Route: 065
     Dates: start: 20230329
  2. CARDIOMEGA E FORTE [Concomitant]
     Indication: Product used for unknown indication
     Dosage: UNK
     Route: 065

REACTIONS (2)
  - Heart rate increased [Unknown]
  - Drug ineffective [Unknown]
